FAERS Safety Report 5148562-3 (Version None)
Quarter: 2006Q4

REPORT INFORMATION
  Report Type: 
  Country: None (occurrence: None)
  Receive Date: 20061106
  Receipt Date: 20061023
  Transmission Date: 20070319
  Serious: Yes (Other)
  Sender: FDA-Public Use
  Company Number: 270001L06JPN

PATIENT
  Age: 36 Year
  Sex: Female

DRUGS (2)
  1. UROFOLLITROPIN [Suspect]
     Indication: IN VITRO FERTILISATION
  2. CHORIONIC GONADTROPIN [Suspect]

REACTIONS (2)
  - ABORTION INDUCED [None]
  - MULTIPLE PREGNANCY [None]
